FAERS Safety Report 6701540-2 (Version None)
Quarter: 2010Q2

REPORT INFORMATION
  Report Type: 
  Country: None (occurrence: None)
  Receive Date: 20100429
  Receipt Date: 20100426
  Transmission Date: 20101027
  Serious: Yes (Death)
  Sender: FDA-Public Use
  Company Number: US-JNJFOC-20100200516

PATIENT
  Sex: Male

DRUGS (4)
  1. RISPERDAL CONSTA [Suspect]
     Indication: DRUG USE FOR UNKNOWN INDICATION
     Route: 030
  2. MOTRIN [Suspect]
     Indication: DRUG USE FOR UNKNOWN INDICATION
     Route: 065
  3. INSULIN [Concomitant]
     Route: 065
  4. DEPAKOTE ER [Concomitant]
     Route: 065

REACTIONS (3)
  - ADVERSE EVENT [None]
  - DEATH [None]
  - INAPPROPRIATE SCHEDULE OF DRUG ADMINISTRATION [None]
